FAERS Safety Report 8560223-7 (Version None)
Quarter: 2012Q3

REPORT INFORMATION
  Report Type: 
  Country: None (occurrence: None)
  Receive Date: 20120802
  Receipt Date: 20120727
  Transmission Date: 20120928
  Serious: Yes (Other)
  Sender: FDA-Public Use
  Company Number: GR-PFIZER INC-2012183304

PATIENT
  Age: 77 Year
  Sex: Male

DRUGS (2)
  1. CAVERJECT [Suspect]
     Indication: ERECTILE DYSFUNCTION
     Dosage: 7 UG, EVERY 3 DAYS
  2. LASIX [Concomitant]
     Indication: DIURETIC THERAPY
     Dosage: UNK

REACTIONS (2)
  - VARICOSE VEIN [None]
  - RENAL FAILURE [None]
